FAERS Safety Report 8140752-0 (Version None)
Quarter: 2012Q1

REPORT INFORMATION
  Report Type: 
  Country: None (occurrence: None)
  Receive Date: 20120216
  Receipt Date: 20120210
  Transmission Date: 20120608
  Serious: Yes (Hospitalization, Other)
  Sender: FDA-Public Use
  Company Number: US-BAYER-2010-004767

PATIENT
  Age: 18 Year
  Sex: Female
  Weight: 63.492 kg

DRUGS (6)
  1. YAZ [Suspect]
     Indication: ACNE
  2. GARDASIL [Concomitant]
     Dosage: UNK
     Dates: start: 20080901
  3. ACETAMINOPHEN [Concomitant]
  4. COMPAZINE [Concomitant]
     Dosage: UNK
     Dates: start: 20090124
  5. YAZ [Suspect]
     Indication: PREMENSTRUAL SYNDROME
  6. YAZ [Suspect]
     Indication: CONTRACEPTION
     Dosage: UNK
     Dates: start: 20080901, end: 20100401

REACTIONS (3)
  - PAIN [None]
  - CHOLECYSTITIS ACUTE [None]
  - GALLBLADDER DISORDER [None]
